FAERS Safety Report 7393833-3 (Version None)
Quarter: 2011Q2

REPORT INFORMATION
  Report Type: 
  Country: None (occurrence: None)
  Receive Date: 20110405
  Receipt Date: 20110324
  Transmission Date: 20111010
  Serious: Yes (Hospitalization, Other)
  Sender: FDA-Public Use
  Company Number: US-SANOFI-AVENTIS-2009SA003857

PATIENT
  Age: 44 Year
  Sex: Female

DRUGS (7)
  1. FLAGYL [Concomitant]
     Indication: INFECTION
     Route: 048
     Dates: start: 20091001
  2. LEVAQUIN [Suspect]
     Indication: INFECTION
     Route: 048
     Dates: start: 20091013, end: 20091019
  3. AMBIEN [Suspect]
     Indication: INSOMNIA
     Route: 048
     Dates: start: 20090406
  4. COGENTIN [Concomitant]
     Indication: MOVEMENT DISORDER
     Route: 048
     Dates: start: 20091001
  5. METRONIDAZOLE [Concomitant]
     Indication: INFECTION
     Route: 065
     Dates: start: 20091010
  6. IBUPROFEN [Suspect]
     Indication: ILL-DEFINED DISORDER
     Route: 065
  7. ADVIL LIQUI-GELS [Suspect]
     Indication: INSOMNIA
     Route: 065

REACTIONS (4)
  - PSYCHOTIC DISORDER [None]
  - INSOMNIA [None]
  - PARANOIA [None]
  - DRUG INTERACTION [None]
